FAERS Safety Report 5107884-2 (Version None)
Quarter: 2006Q3

REPORT INFORMATION
  Report Type: 
  Country: None (occurrence: None)
  Receive Date: 20060915
  Receipt Date: 20060906
  Transmission Date: 20061208
  Serious: Yes (Hospitalization, Other)
  Sender: FDA-Public Use
  Company Number: 2006108525

PATIENT
  Age: 37 Year
  Sex: Female

DRUGS (13)
  1. NEURONTIN [Suspect]
     Indication: EPILEPSY
     Dosage: 900 MG (1 IN 1 D),
     Dates: start: 20060401, end: 20060515
  2. NEURONTIN [Suspect]
     Indication: PAIN
     Dosage: 900 MG (1 IN 1 D),
     Dates: start: 20060401, end: 20060515
  3. KLONOPIN [Suspect]
     Indication: EPILEPSY
     Dosage: 2 MG (1 IN 1 D),
     Dates: start: 20060220, end: 20060515
  4. KLONOPIN [Suspect]
     Indication: PAIN
     Dosage: 2 MG (1 IN 1 D),
     Dates: start: 20060220, end: 20060515
  5. LAMICTAL [Suspect]
     Indication: EPILEPSY
     Dosage: 400 MG (1 IN 1 D),
     Dates: start: 20060220, end: 20060515
  6. LAMICTAL [Suspect]
     Indication: PAIN
     Dosage: 400 MG (1 IN 1 D),
     Dates: start: 20060220, end: 20060515
  7. ZOLOFT [Concomitant]
  8. PERCOCET [Concomitant]
  9. FENTANYL [Concomitant]
  10. PROGESTERONE [Concomitant]
  11. VANCERIL (BECLOMETASONE DIPROPIONATE) [Concomitant]
  12. PRENATAL VITAMINS (ASCORBIC ACID, BIOTIN, MINERALS NOS, NICOTINIC ACID [Concomitant]
  13. DETROL LA [Concomitant]

REACTIONS (3)
  - CERVICAL INCOMPETENCE [None]
  - DRUG EXPOSURE DURING PREGNANCY [None]
  - PREMATURE LABOUR [None]
